FAERS Safety Report 16461202 (Version 4)
Quarter: 2019Q4

REPORT INFORMATION
  Report Type: Report from Study
  Country: US (occurrence: US)
  Receive Date: 20190620
  Receipt Date: 20191106
  Transmission Date: 20200122
  Serious: Yes (Other)
  Sender: FDA-Public Use
  Company Number: PHEH2019US025724

PATIENT
  Sex: Male

DRUGS (2)
  1. COREG [Suspect]
     Active Substance: CARVEDILOL
     Indication: PRODUCT USED FOR UNKNOWN INDICATION
     Dosage: UNK
     Route: 065
  2. ENTRESTO [Suspect]
     Active Substance: SACUBITRIL\VALSARTAN
     Indication: PRODUCT USED FOR UNKNOWN INDICATION
     Dosage: 50 MG (SACUBITRIL 24MG AND VALSARTAN 26MG), BID
     Route: 048

REACTIONS (9)
  - Cerebrovascular accident [Unknown]
  - Hypotension [Unknown]
  - Atrial fibrillation [Unknown]
  - Fine motor skill dysfunction [Unknown]
  - Muscular weakness [Unknown]
  - Contraindicated product administered [Unknown]
  - Weight increased [Unknown]
  - Blood cholesterol increased [Unknown]
  - Weight fluctuation [Unknown]
